FAERS Safety Report 7669708-9 (Version None)
Quarter: 2011Q3

REPORT INFORMATION
  Report Type: 
  Country: None (occurrence: None)
  Receive Date: 20110808
  Receipt Date: 20110802
  Transmission Date: 20111222
  Serious: Yes (Death)
  Sender: FDA-Public Use
  Company Number: JP-GENZYME-THYM-1002681

PATIENT
  Age: 55 Year
  Sex: Male
  Weight: 60 kg

DRUGS (2)
  1. THYMOGLOBULIN [Suspect]
     Indication: BONE MARROW CONDITIONING REGIMEN
     Dosage: 0.5 MG/KG, QD
     Route: 042
     Dates: start: 20100916, end: 20100916
  2. THYMOGLOBULIN [Suspect]
     Dosage: 1 MG/KG, QD
     Route: 042
     Dates: start: 20100917, end: 20100918

REACTIONS (1)
  - HEPATIC FAILURE [None]
